FAERS Safety Report 19209995 (Version 1)
Quarter: 2021Q2

REPORT INFORMATION
  Report Type: Spontaneous
  Country: US (occurrence: US)
  Receive Date: 20210504
  Receipt Date: 20210504
  Transmission Date: 20210717
  Serious: Yes (Other)
  Sender: FDA-Public Use
  Company Number: US-CADILA HEALTHCARE LIMITED-US-ZYDUS-065072

PATIENT

DRUGS (7)
  1. DEXMEDETOMIDINE. [Suspect]
     Active Substance: DEXMEDETOMIDINE
     Indication: SURGERY
     Dosage: UNK
     Route: 045
  2. MIDAZOLAM. [Suspect]
     Active Substance: MIDAZOLAM
     Indication: SURGERY
     Dosage: UNK
     Route: 065
  3. CHLORHEXIDINE [Suspect]
     Active Substance: CHLORHEXIDINE
     Indication: SURGERY
     Dosage: UNK
     Route: 065
  4. LIDOCAINE. [Suspect]
     Active Substance: LIDOCAINE
     Dosage: 1 PERCENT
     Route: 058
  5. BUPIVACAINE. [Suspect]
     Active Substance: BUPIVACAINE
     Indication: SURGERY
     Dosage: 0.5 PERCENT
     Route: 037
  6. FENTANYL. [Suspect]
     Active Substance: FENTANYL
     Indication: SURGERY
     Dosage: UNK
     Route: 045
  7. LIDOCAINE. [Suspect]
     Active Substance: LIDOCAINE
     Indication: SURGERY
     Dosage: 4 PERCENT
     Route: 061

REACTIONS (3)
  - Hyperthermia [Unknown]
  - Urticaria [Unknown]
  - Tachycardia [Unknown]
